FAERS Safety Report 16428000 (Version 2)
Quarter: 2019Q3

REPORT INFORMATION
  Report Type: Report from Study
  Country: US (occurrence: US)
  Receive Date: 20190613
  Receipt Date: 20190708
  Transmission Date: 20191004
  Serious: No
  Sender: FDA-Public Use
  Company Number: US-SA-2019SA158183

PATIENT
  Sex: Female

DRUGS (1)
  1. DUPILUMAB [Suspect]
     Active Substance: DUPILUMAB
     Indication: ASTHMA
     Dosage: 300 MG, QOW
     Route: 058

REACTIONS (5)
  - Eye pruritus [Not Recovered/Not Resolved]
  - Arthralgia [Not Recovered/Not Resolved]
  - Product prescribing error [Unknown]
  - Sneezing [Unknown]
  - Dry eye [Not Recovered/Not Resolved]
